FAERS Safety Report 9308650 (Version 4)
Quarter: 2013Q3

REPORT INFORMATION
  Report Type: Report from Study
  Country: CA (occurrence: CA)
  Receive Date: 20130524
  Receipt Date: 20130909
  Transmission Date: 20140515
  Serious: Yes (Other)
  Sender: FDA-Public Use
  Company Number: CA-ABBOTT-13P-028-1094349-00

PATIENT
  Age: 58 Year
  Sex: Male
  Weight: 136.2 kg

DRUGS (10)
  1. HUMIRA [Suspect]
     Indication: PSORIASIS
     Route: 058
     Dates: start: 20110216
  2. HUMIRA [Suspect]
     Route: 058
     Dates: start: 20120825, end: 20130522
  3. METHOTREXATE [Concomitant]
     Indication: PSORIASIS
     Dates: start: 2007
  4. CLOBETASOL PROPIONATE [Concomitant]
     Indication: PSORIASIS
     Route: 061
     Dates: start: 2011
  5. DAIVOBET [Concomitant]
     Indication: PSORIASIS
     Dates: start: 2011
  6. HUMULIN R [Concomitant]
     Indication: DIABETES MELLITUS
     Dates: start: 2012
  7. HUMULIN R [Concomitant]
     Dates: start: 2012
  8. CRESTOR [Concomitant]
     Indication: HYPERLIPIDAEMIA
     Dates: start: 2005
  9. METOPROLOL [Concomitant]
     Indication: HYPERTENSION
     Dates: start: 2005
  10. ATARAX [Concomitant]
     Indication: ANXIETY
     Dates: start: 1975

REACTIONS (1)
  - Renal cell carcinoma [Recovered/Resolved]
